FAERS Safety Report 4694111-3 (Version None)
Quarter: 2005Q2

REPORT INFORMATION
  Report Type: 
  Country: None (occurrence: None)
  Receive Date: 20050614
  Receipt Date: 20050210
  Transmission Date: 20051028
  Serious: No
  Sender: FDA-Public Use
  Company Number: USA050290555

PATIENT
  Sex: Male

DRUGS (4)
  1. CIALIS [Suspect]
     Indication: ERECTILE DYSFUNCTION
     Dosage: 20 MG
     Dates: start: 20030101
  2. NEURONTIN (GABAPENTIN PFIZER) [Concomitant]
  3. MUSCLE RELAXER / ANTI-INFLAMMATORY [Concomitant]
  4. EFFEXOR [Concomitant]

REACTIONS (3)
  - EJACULATION DELAYED [None]
  - SPONTANEOUS PENILE ERECTION [None]
  - THERAPEUTIC RESPONSE DECREASED [None]
